FAERS Safety Report 24554253 (Version 2)
Quarter: 2025Q1

REPORT INFORMATION
  Report Type: Spontaneous
  Country: CA (occurrence: CA)
  Receive Date: 20241028
  Receipt Date: 20250317
  Transmission Date: 20250409
  Serious: Yes (Death, Life-Threatening, Hospitalization, Disabling, Congenital Anomaly, Other)
  Sender: Haleon PLC
  Company Number: CA-HALEON-2204359

PATIENT
  Age: 40 Year
  Sex: Female

DRUGS (110)
  1. DICLOFENAC SODIUM [Suspect]
     Active Substance: DICLOFENAC SODIUM
     Indication: Product used for unknown indication
     Route: 065
  2. DICLOFENAC SODIUM [Suspect]
     Active Substance: DICLOFENAC SODIUM
     Route: 065
  3. DICLOFENAC SODIUM [Suspect]
     Active Substance: DICLOFENAC SODIUM
     Route: 058
  4. ACETAMINOPHEN [Suspect]
     Active Substance: ACETAMINOPHEN
     Indication: Rheumatoid arthritis
     Route: 065
  5. DICLOFENAC DIETHYLAMINE [Suspect]
     Active Substance: DICLOFENAC DIETHYLAMINE
     Indication: Product used for unknown indication
     Route: 065
  6. HYDROCORTISONE [Suspect]
     Active Substance: HYDROCORTISONE
     Indication: Product used for unknown indication
     Route: 065
  7. TUMS [Suspect]
     Active Substance: CALCIUM CARBONATE
     Indication: Product used for unknown indication
     Route: 065
  8. TUMS [Suspect]
     Active Substance: CALCIUM CARBONATE
     Route: 065
  9. ACTEMRA [Suspect]
     Active Substance: TOCILIZUMAB
     Indication: Rheumatoid arthritis
     Route: 040
  10. ACTEMRA [Suspect]
     Active Substance: TOCILIZUMAB
     Route: 058
  11. ACTEMRA [Suspect]
     Active Substance: TOCILIZUMAB
     Route: 058
  12. ACTEMRA [Suspect]
     Active Substance: TOCILIZUMAB
     Route: 040
  13. ACTEMRA [Suspect]
     Active Substance: TOCILIZUMAB
     Route: 065
  14. ACTEMRA [Suspect]
     Active Substance: TOCILIZUMAB
     Route: 040
  15. ACTEMRA [Suspect]
     Active Substance: TOCILIZUMAB
     Route: 058
  16. ACTEMRA [Suspect]
     Active Substance: TOCILIZUMAB
     Route: 016
  17. ACTEMRA [Suspect]
     Active Substance: TOCILIZUMAB
     Route: 040
  18. ACTEMRA [Suspect]
     Active Substance: TOCILIZUMAB
     Route: 058
  19. ACTEMRA [Suspect]
     Active Substance: TOCILIZUMAB
     Route: 050
  20. ACTEMRA [Suspect]
     Active Substance: TOCILIZUMAB
     Route: 061
  21. ACTEMRA [Suspect]
     Active Substance: TOCILIZUMAB
     Route: 058
  22. ACTEMRA [Suspect]
     Active Substance: TOCILIZUMAB
     Route: 040
  23. ACTEMRA [Suspect]
     Active Substance: TOCILIZUMAB
     Route: 065
  24. ACTEMRA [Suspect]
     Active Substance: TOCILIZUMAB
     Route: 065
  25. ACTEMRA [Suspect]
     Active Substance: TOCILIZUMAB
     Route: 040
  26. ACTEMRA [Suspect]
     Active Substance: TOCILIZUMAB
     Route: 040
  27. ACTEMRA [Suspect]
     Active Substance: TOCILIZUMAB
     Route: 065
  28. ACTEMRA [Suspect]
     Active Substance: TOCILIZUMAB
     Route: 040
  29. ACTEMRA [Suspect]
     Active Substance: TOCILIZUMAB
     Route: 040
  30. APREMILAST [Suspect]
     Active Substance: APREMILAST
     Indication: Rheumatoid arthritis
     Route: 065
  31. ARAVA [Suspect]
     Active Substance: LEFLUNOMIDE
     Indication: Rheumatoid arthritis
     Route: 048
  32. ARAVA [Suspect]
     Active Substance: LEFLUNOMIDE
     Route: 065
  33. ARAVA [Suspect]
     Active Substance: LEFLUNOMIDE
     Route: 048
  34. ATOMOXETINE [Suspect]
     Active Substance: ATOMOXETINE
     Indication: Migraine
     Route: 065
  35. ADALIMUMAB [Suspect]
     Active Substance: ADALIMUMAB
     Indication: Rheumatoid arthritis
     Route: 058
  36. ADALIMUMAB [Suspect]
     Active Substance: ADALIMUMAB
     Route: 058
  37. ADALIMUMAB [Suspect]
     Active Substance: ADALIMUMAB
     Route: 058
  38. ALENDRONIC ACID [Suspect]
     Active Substance: ALENDRONIC ACID
     Indication: Rheumatoid arthritis
     Route: 048
  39. ALENDRONIC ACID [Suspect]
     Active Substance: ALENDRONIC ACID
     Route: 048
  40. ALENDRONIC ACID [Suspect]
     Active Substance: ALENDRONIC ACID
     Route: 065
  41. ALENDRONIC ACID [Suspect]
     Active Substance: ALENDRONIC ACID
     Route: 016
  42. ALENDRONATE SODIUM\CHOLECALCIFEROL [Suspect]
     Active Substance: ALENDRONATE SODIUM\CHOLECALCIFEROL
     Indication: Rheumatoid arthritis
     Route: 065
  43. LEFLUNOMIDE [Suspect]
     Active Substance: LEFLUNOMIDE
     Indication: Rheumatoid arthritis
     Route: 065
  44. LEFLUNOMIDE [Suspect]
     Active Substance: LEFLUNOMIDE
     Route: 048
  45. LEFLUNOMIDE [Suspect]
     Active Substance: LEFLUNOMIDE
     Route: 065
  46. PREDNISONE [Suspect]
     Active Substance: PREDNISONE
     Indication: Rheumatoid arthritis
     Dosage: 1 EVERY 1 DAYS
     Route: 048
  47. PREDNISONE [Suspect]
     Active Substance: PREDNISONE
     Dosage: 1 EVERY 1 DAYS
     Route: 048
  48. PREDNISONE [Suspect]
     Active Substance: PREDNISONE
     Route: 048
  49. PREDNISONE [Suspect]
     Active Substance: PREDNISONE
     Route: 048
  50. PREDNISONE [Suspect]
     Active Substance: PREDNISONE
     Route: 048
  51. PREDNISONE [Suspect]
     Active Substance: PREDNISONE
     Dosage: 1 EVERY 1 DAYS
     Route: 048
  52. AZATHIOPRINE SODIUM [Suspect]
     Active Substance: AZATHIOPRINE SODIUM
     Indication: Product used for unknown indication
     Route: 065
  53. BERINERT [Suspect]
     Active Substance: HUMAN C1-ESTERASE INHIBITOR
     Indication: Product used for unknown indication
     Route: 065
  54. BOTULINUM TOXIN TYPE A [Suspect]
     Active Substance: BOTULINUM TOXIN TYPE A
     Indication: Product used for unknown indication
     Route: 065
  55. COSENTYX [Suspect]
     Active Substance: SECUKINUMAB
     Indication: Rheumatoid arthritis
     Route: 065
  56. COSENTYX [Suspect]
     Active Substance: SECUKINUMAB
     Indication: Psoriatic arthropathy
     Route: 065
  57. ENBREL [Suspect]
     Active Substance: ETANERCEPT
     Indication: Product used for unknown indication
     Route: 058
  58. ENBREL [Suspect]
     Active Substance: ETANERCEPT
     Route: 065
  59. ENBREL [Suspect]
     Active Substance: ETANERCEPT
     Route: 058
  60. ENBREL [Suspect]
     Active Substance: ETANERCEPT
     Route: 058
  61. ENBREL [Suspect]
     Active Substance: ETANERCEPT
     Route: 058
  62. ENBREL [Suspect]
     Active Substance: ETANERCEPT
     Route: 058
  63. ENBREL [Suspect]
     Active Substance: ETANERCEPT
     Route: 065
  64. ERENUMAB-AOOE [Suspect]
     Active Substance: ERENUMAB-AOOE
     Indication: Migraine
     Route: 065
  65. ERENUMAB-AOOE [Suspect]
     Active Substance: ERENUMAB-AOOE
     Route: 065
  66. FOLIC ACID [Suspect]
     Active Substance: FOLIC ACID
     Indication: Rheumatoid arthritis
     Route: 065
  67. FOLIC ACID [Suspect]
     Active Substance: FOLIC ACID
     Route: 065
  68. FOLIC ACID [Suspect]
     Active Substance: FOLIC ACID
     Route: 065
  69. FOLIC ACID [Suspect]
     Active Substance: FOLIC ACID
     Route: 065
  70. FOLIC ACID [Suspect]
     Active Substance: FOLIC ACID
     Route: 065
  71. FOLIC ACID [Suspect]
     Active Substance: FOLIC ACID
     Route: 065
  72. FOLIC ACID [Suspect]
     Active Substance: FOLIC ACID
     Route: 058
  73. FOLIC ACID [Suspect]
     Active Substance: FOLIC ACID
     Route: 065
  74. FOLIC ACID [Suspect]
     Active Substance: FOLIC ACID
     Route: 048
  75. FOLIC ACID [Suspect]
     Active Substance: FOLIC ACID
     Route: 065
  76. FOLIC ACID [Suspect]
     Active Substance: FOLIC ACID
     Route: 065
  77. FOLIC ACID [Suspect]
     Active Substance: FOLIC ACID
     Route: 065
  78. INFLIXIMAB [Suspect]
     Active Substance: INFLIXIMAB
     Indication: Rheumatoid arthritis
     Route: 065
  79. INFLIXIMAB [Suspect]
     Active Substance: INFLIXIMAB
     Route: 040
  80. INFLIXIMAB [Suspect]
     Active Substance: INFLIXIMAB
     Route: 040
  81. INFLIXIMAB [Suspect]
     Active Substance: INFLIXIMAB
     Route: 040
  82. INFLIXIMAB [Suspect]
     Active Substance: INFLIXIMAB
     Route: 040
  83. RITUXIMAB [Suspect]
     Active Substance: RITUXIMAB
     Indication: Product used for unknown indication
     Route: 016
  84. RITUXIMAB [Suspect]
     Active Substance: RITUXIMAB
     Route: 065
  85. RITUXIMAB [Suspect]
     Active Substance: RITUXIMAB
     Route: 065
  86. RITUXIMAB [Suspect]
     Active Substance: RITUXIMAB
     Route: 065
  87. RITUXIMAB [Suspect]
     Active Substance: RITUXIMAB
     Route: 016
  88. RITUXIMAB [Suspect]
     Active Substance: RITUXIMAB
     Route: 043
  89. RITUXIMAB [Suspect]
     Active Substance: RITUXIMAB
     Route: 040
  90. RITUXIMAB [Suspect]
     Active Substance: RITUXIMAB
     Route: 040
  91. RITUXIMAB [Suspect]
     Active Substance: RITUXIMAB
     Route: 016
  92. RITUXIMAB [Suspect]
     Active Substance: RITUXIMAB
     Route: 040
  93. RITUXIMAB [Suspect]
     Active Substance: RITUXIMAB
     Route: 050
  94. RITUXIMAB [Suspect]
     Active Substance: RITUXIMAB
     Route: 040
  95. RITUXIMAB [Suspect]
     Active Substance: RITUXIMAB
     Route: 050
  96. RITUXIMAB [Suspect]
     Active Substance: RITUXIMAB
     Route: 065
  97. RITUXIMAB [Suspect]
     Active Substance: RITUXIMAB
     Route: 050
  98. RITUXIMAB [Suspect]
     Active Substance: RITUXIMAB
     Route: 040
  99. RITUXIMAB [Suspect]
     Active Substance: RITUXIMAB
     Route: 040
  100. RITUXIMAB [Suspect]
     Active Substance: RITUXIMAB
     Dosage: 1 EVERY 1 DAYS
     Route: 065
  101. RITUXIMAB [Suspect]
     Active Substance: RITUXIMAB
     Route: 050
  102. RITUXIMAB [Suspect]
     Active Substance: RITUXIMAB
     Route: 043
  103. RITUXIMAB [Suspect]
     Active Substance: RITUXIMAB
     Route: 065
  104. RITUXIMAB [Suspect]
     Active Substance: RITUXIMAB
     Route: 058
  105. RITUXIMAB [Suspect]
     Active Substance: RITUXIMAB
     Route: 050
  106. RITUXIMAB [Suspect]
     Active Substance: RITUXIMAB
     Route: 058
  107. RITUXIMAB [Suspect]
     Active Substance: RITUXIMAB
     Route: 041
  108. RITUXIMAB [Suspect]
     Active Substance: RITUXIMAB
     Route: 065
  109. RITUXIMAB [Suspect]
     Active Substance: RITUXIMAB
     Route: 040
  110. RITUXIMAB [Suspect]
     Active Substance: RITUXIMAB
     Route: 058

REACTIONS (30)
  - Coeliac disease [Fatal]
  - Abdominal discomfort [Fatal]
  - Abdominal distension [Fatal]
  - Alopecia [Fatal]
  - Anti-cyclic citrullinated peptide antibody positive [Fatal]
  - Arthralgia [Fatal]
  - Arthropathy [Fatal]
  - Blood cholesterol increased [Fatal]
  - Condition aggravated [Fatal]
  - Drug intolerance [Fatal]
  - Drug-induced liver injury [Fatal]
  - Dyspepsia [Fatal]
  - Fatigue [Fatal]
  - Gastrointestinal disorder [Fatal]
  - General physical health deterioration [Fatal]
  - Glossodynia [Fatal]
  - Grip strength decreased [Fatal]
  - Hand deformity [Fatal]
  - Headache [Fatal]
  - Hepatic enzyme increased [Fatal]
  - Hypersensitivity [Fatal]
  - Hypertension [Fatal]
  - Insomnia [Fatal]
  - Joint swelling [Fatal]
  - Malaise [Fatal]
  - Maternal exposure during pregnancy [Fatal]
  - Musculoskeletal stiffness [Fatal]
  - Nail disorder [Fatal]
  - Off label use [Fatal]
  - Product label confusion [Fatal]
